FAERS Safety Report 5270904-9 (Version None)
Quarter: 2007Q1

REPORT INFORMATION
  Report Type: 
  Country: None (occurrence: None)
  Receive Date: 20061214
  Receipt Date: 20051216
  Transmission Date: 20070707
  Serious: Yes (Other)
  Sender: FDA-Public Use
  Company Number: 2005157397

PATIENT
  Age: 50 Year
  Sex: Female
  Weight: 68.0396 kg

DRUGS (1)
  1. BEXTRA [Suspect]
     Indication: JOINT SPRAIN
     Dosage: 40 MG (20 MG, 2 IN 1 D)
     Dates: start: 20040320, end: 20040101

REACTIONS (2)
  - ANGINA PECTORIS [None]
  - FLUID RETENTION [None]
